FAERS Safety Report 17076560 (Version 2)
Quarter: 2020Q1

REPORT INFORMATION
  Report Type: Spontaneous
  Country: US (occurrence: US)
  Receive Date: 20191126
  Receipt Date: 20200311
  Transmission Date: 20200409
  Serious: Yes (Other)
  Sender: FDA-Public Use
  Company Number: US-SA-2019SA323196

PATIENT
  Age: 56 Year
  Sex: Female
  Weight: 80.72 kg

DRUGS (29)
  1. TAXOTERE [Suspect]
     Active Substance: DOCETAXEL
     Indication: BREAST CANCER FEMALE
     Dosage: UNK UNK, Q3W
     Route: 042
     Dates: start: 20140428, end: 20140428
  2. TAXOTERE [Suspect]
     Active Substance: DOCETAXEL
     Dosage: UNK, Q3W
     Route: 042
     Dates: start: 20140811, end: 20140811
  3. CEFAZOLIN [Concomitant]
     Active Substance: CEFAZOLIN
     Dosage: UNK
     Route: 065
  4. DOXORUBICIN [Concomitant]
     Active Substance: DOXORUBICIN
     Dosage: UNK
     Route: 065
  5. SODIUM BICARBONATE. [Concomitant]
     Active Substance: SODIUM BICARBONATE
     Dosage: UNK
     Route: 065
  6. PROCHLORPERAZINE MALEATE. [Concomitant]
     Active Substance: PROCHLORPERAZINE MALEATE
     Dosage: UNK MG
     Route: 065
  7. NEOSAR [Concomitant]
     Active Substance: CYCLOPHOSPHAMIDE
     Indication: BREAST CANCER FEMALE
     Dosage: UNK
     Route: 065
     Dates: start: 20140428
  8. MIDAZOLAM HYDROCHLORIDE. [Concomitant]
     Active Substance: MIDAZOLAM HYDROCHLORIDE
     Dosage: UNK
     Route: 065
  9. PALONOSETRON. [Concomitant]
     Active Substance: PALONOSETRON HYDROCHLORIDE
     Dosage: UNK
     Route: 065
  10. SYNTHROID [Concomitant]
     Active Substance: LEVOTHYROXINE SODIUM
     Dosage: UNK
     Route: 065
  11. MECLIZINE [Concomitant]
     Active Substance: MECLIZINE HYDROCHLORIDE
     Dosage: UNK
     Route: 065
  12. FENTANYL. [Concomitant]
     Active Substance: FENTANYL
     Dosage: UNK
     Route: 065
  13. DEXAMETHASONE SODIUM PHOSPHATE. [Concomitant]
     Active Substance: DEXAMETHASONE SODIUM PHOSPHATE
     Dosage: UNK
     Route: 065
  14. BUSPIRONE [Concomitant]
     Active Substance: BUSPIRONE HYDROCHLORIDE
     Dosage: UNK MG
     Route: 065
  15. HEPARIN LOCK FLUSH [Concomitant]
     Active Substance: HEPARIN SODIUM
     Dosage: UNK
     Route: 065
  16. FOSAPREPITANT [Concomitant]
     Active Substance: FOSAPREPITANT
     Dosage: UNK
     Route: 065
  17. DECADRON [Concomitant]
     Active Substance: DEXAMETHASONE
     Dosage: UNK
     Route: 042
  18. PEGFILGRASTIM [Concomitant]
     Active Substance: PEGFILGRASTIM
     Dosage: UNK
     Route: 065
  19. LAMOTRIGINE. [Concomitant]
     Active Substance: LAMOTRIGINE
     Dosage: UNK MG
     Route: 065
  20. SERTRALINE [Concomitant]
     Active Substance: SERTRALINE HYDROCHLORIDE
     Dosage: UNK
     Route: 065
  21. ZOFRAN [Concomitant]
     Active Substance: ONDANSETRON HYDROCHLORIDE
     Dosage: UNK
     Route: 065
  22. ZYRTEC [Concomitant]
     Active Substance: CETIRIZINE HYDROCHLORIDE
     Dosage: UNK
     Route: 065
  23. LIDOCAINE. [Concomitant]
     Active Substance: LIDOCAINE
     Dosage: UNK
     Route: 065
  24. SODIUM CHLORIDE. [Concomitant]
     Active Substance: SODIUM CHLORIDE
     Dosage: UNK
     Route: 065
  25. LORAZEPAM. [Concomitant]
     Active Substance: LORAZEPAM
     Dosage: UNK
     Route: 065
  26. EMEND [Concomitant]
     Active Substance: APREPITANT
     Route: 042
  27. ALOXI [Concomitant]
     Active Substance: PALONOSETRON HYDROCHLORIDE
     Dosage: UNK
     Route: 065
  28. CYTOXAN [Concomitant]
     Active Substance: CYCLOPHOSPHAMIDE
     Indication: BREAST CANCER FEMALE
     Dosage: UNK
     Route: 065
     Dates: start: 20140128
  29. KETOROLAC [Concomitant]
     Active Substance: KETOROLAC TROMETHAMINE
     Dosage: UNK
     Route: 065

REACTIONS (5)
  - Pain [Unknown]
  - Impaired quality of life [Unknown]
  - Anxiety [Unknown]
  - Alopecia [Recovering/Resolving]
  - Emotional distress [Unknown]

NARRATIVE: CASE EVENT DATE: 2014
